FAERS Safety Report 7833605-6 (Version None)
Quarter: 2011Q4

REPORT INFORMATION
  Report Type: 
  Country: None (occurrence: None)
  Receive Date: 20111024
  Receipt Date: 20111012
  Transmission Date: 20120403
  Serious: Yes (Other)
  Sender: FDA-Public Use
  Company Number: JP-BRISTOL-MYERS SQUIBB COMPANY-16168916

PATIENT
  Age: 77 Year
  Sex: Female

DRUGS (2)
  1. KENACORT [Suspect]
     Indication: OSTEOARTHRITIS
     Route: 014
     Dates: start: 20111005, end: 20111005
  2. XYLOCAINE [Concomitant]
     Route: 014
     Dates: start: 20111005, end: 20111005

REACTIONS (1)
  - JOINT EFFUSION [None]
